FAERS Safety Report 9348329 (Version 1)
Quarter: 2013Q2

REPORT INFORMATION
  Report Type: Spontaneous
  Country: US (occurrence: None)
  Receive Date: 20130613
  Receipt Date: 20130613
  Transmission Date: 20140414
  Serious: Yes (Death)
  Sender: FDA-Public Use
  Company Number: None

PATIENT
  Age: 70 Year
  Sex: Male
  Weight: 136 kg

DRUGS (1)
  1. ALTEPLASE [Suspect]
     Indication: ISCHAEMIC STROKE
     Dosage: 90 MG  ONCE  IV
     Route: 042
     Dates: start: 20130416, end: 20130416

REACTIONS (3)
  - Haemorrhage intracranial [None]
  - Pupil fixed [None]
  - Areflexia [None]
